FAERS Safety Report 6703068-2 (Version None)
Quarter: 2010Q2

REPORT INFORMATION
  Report Type: 
  Country: None (occurrence: None)
  Receive Date: 20100427
  Receipt Date: 20100420
  Transmission Date: 20101027
  Serious: Yes (Life-Threatening, Hospitalization, Other)
  Sender: FDA-Public Use
  Company Number: 2010SP014535

PATIENT
  Age: 65 Year
  Sex: Male

DRUGS (11)
  1. DEXAMETHASONE [Suspect]
     Indication: MULTIPLE MYELOMA
  2. VELCADE [Suspect]
     Indication: MULTIPLE MYELOMA
     Dosage: 1.3 MG/M2
     Dates: start: 20080101
  3. CYCLOPHOSPHAMIDE [Suspect]
     Indication: DRUG USE FOR UNKNOWN INDICATION
  4. DOXORUBICIN HCL [Suspect]
     Indication: MULTIPLE MYELOMA
  5. THALIDOMIDE [Suspect]
     Indication: DRUG USE FOR UNKNOWN INDICATION
  6. VINCRISTINE SULFATE [Suspect]
     Indication: MULTIPLE MYELOMA
  7. DECADRON [Suspect]
     Indication: MULTIPLE MYELOMA
  8. FLOXACILLIN SODIUM [Concomitant]
  9. GENTAMICIN [Concomitant]
  10. PIPERACILLIN SODIUM [Concomitant]
  11. TAZOBACTAM SODIUM [Concomitant]

REACTIONS (13)
  - BLOOD CREATINE PHOSPHOKINASE INCREASED [None]
  - BLOOD UREA INCREASED [None]
  - CELLULITIS [None]
  - HEPATITIS [None]
  - NECROTISING FASCIITIS [None]
  - NEUTROPHIL COUNT DECREASED [None]
  - PAIN [None]
  - PLATELET COUNT DECREASED [None]
  - PROTEUS INFECTION [None]
  - PSEUDOMONAS INFECTION [None]
  - SALMONELLOSIS [None]
  - SEPTIC SHOCK [None]
  - WHITE BLOOD CELL COUNT DECREASED [None]
